FAERS Safety Report 7301291-X (Version None)
Quarter: 2011Q1

REPORT INFORMATION
  Report Type: 
  Country: None (occurrence: None)
  Receive Date: 20110218
  Receipt Date: 20110214
  Transmission Date: 20110831
  Serious: Yes (Death, Life-Threatening, Hospitalization)
  Sender: FDA-Public Use
  Company Number: CZ-AMGEN-CZECT2011008366

PATIENT
  Age: 46 Year
  Sex: Female

DRUGS (11)
  1. METOCLOPRAMIDE HCL [Concomitant]
     Dosage: UNK
     Dates: start: 20110119, end: 20110126
  2. CARMUSTINE [Concomitant]
     Dosage: 540 MG, UNK
     Route: 042
     Dates: start: 20110112
  3. RITUXIMAB [Concomitant]
     Indication: DIFFUSE LARGE B-CELL LYMPHOMA
     Dosage: 700 MG, UNK
     Route: 042
     Dates: start: 20100818, end: 20100827
  4. CYTARABINE [Concomitant]
     Dosage: 340 MG, Q12H
     Route: 042
     Dates: start: 20110113, end: 20110116
  5. PARACETAMOL [Concomitant]
  6. NOVALGIN                           /06276704/ [Concomitant]
     Dosage: UNK
     Dates: start: 20110124, end: 20110129
  7. ITRACONAZOLE [Concomitant]
     Dosage: UNK
     Dates: start: 20110122, end: 20110129
  8. FILGRASTIM [Suspect]
     Indication: DIFFUSE LARGE B-CELL LYMPHOMA
     Dosage: 300 A?G, QD
     Route: 058
     Dates: start: 20110125, end: 20110129
  9. MELPHALAN [Concomitant]
     Dosage: 240 MG, UNK
     Route: 042
     Dates: start: 20110117, end: 20110117
  10. ETOPOSIDE [Concomitant]
     Dosage: 340 MG, UNK
     Route: 042
     Dates: start: 20110113, end: 20110116
  11. MORPHINE [Concomitant]
     Dosage: UNK
     Dates: start: 20110122, end: 20110126

REACTIONS (2)
  - SEPTIC SHOCK [None]
  - INFUSION RELATED REACTION [None]
